FAERS Safety Report 6167794-9 (Version None)
Quarter: 2009Q2

REPORT INFORMATION
  Report Type: 
  Country: None (occurrence: None)
  Receive Date: 20090423
  Receipt Date: 20090407
  Transmission Date: 20091009
  Serious: Yes (Hospitalization)
  Sender: FDA-Public Use
  Company Number: B0441121A

PATIENT
  Age: 73 Year
  Sex: Male

DRUGS (2)
  1. VALTREX [Suspect]
     Indication: HERPES ZOSTER
     Dosage: 1000 MG / THREE TIMES PER DAY / ORAL
     Route: 048
     Dates: start: 20060922, end: 20060923
  2. HEMODIALYSIS [Concomitant]

REACTIONS (11)
  - AGITATION [None]
  - CONDITION AGGRAVATED [None]
  - CONFUSIONAL STATE [None]
  - DIALYSIS [None]
  - FEAR OF DEATH [None]
  - HAEMODIALYSIS [None]
  - HALLUCINATION [None]
  - NEUROTOXICITY [None]
  - PHOTOSENSITIVITY REACTION [None]
  - RENAL FAILURE CHRONIC [None]
  - RESTLESSNESS [None]
